FAERS Safety Report 24697533 (Version 3)
Quarter: 2025Q1

REPORT INFORMATION
  Report Type: Spontaneous
  Country: US (occurrence: US)
  Receive Date: 20241204
  Receipt Date: 20250208
  Transmission Date: 20250409
  Serious: No
  Sender: ROCHE
  Company Number: US-ROCHE-10000141333

PATIENT

DRUGS (1)
  1. HEMLIBRA [Suspect]
     Active Substance: EMICIZUMAB-KXWH
     Indication: Product used for unknown indication
     Route: 065

REACTIONS (3)
  - Underdose [Unknown]
  - Product complaint [Unknown]
  - No adverse event [Unknown]
